FAERS Safety Report 24380829 (Version 1)
Quarter: 2024Q3

REPORT INFORMATION
  Report Type: Spontaneous
  Country: US (occurrence: US)
  Receive Date: 20240930
  Receipt Date: 20240930
  Transmission Date: 20241017
  Serious: Yes (Death, Hospitalization, Other)
  Sender: PURDUE
  Company Number: US-PURDUE-USA-2024-0312224

PATIENT
  Age: 61 Year
  Sex: Male

DRUGS (1)
  1. THEOPHYLLINE ANHYDROUS [Suspect]
     Active Substance: THEOPHYLLINE ANHYDROUS
     Indication: Product used for unknown indication
     Dosage: UNK
     Route: 065

REACTIONS (8)
  - Toxicity to various agents [Fatal]
  - Vasoplegia syndrome [Not Recovered/Not Resolved]
  - Shock [Unknown]
  - Disseminated intravascular coagulation [Unknown]
  - Hypoxia [Unknown]
  - Generalised tonic-clonic seizure [Unknown]
  - Palpitations [Unknown]
  - Nausea [Unknown]
